FAERS Safety Report 6737528-5 (Version None)
Quarter: 2010Q2

REPORT INFORMATION
  Report Type: 
  Country: None (occurrence: None)
  Receive Date: 20100524
  Receipt Date: 20100512
  Transmission Date: 20101027
  Serious: Yes (Hospitalization)
  Sender: FDA-Public Use
  Company Number: US-JNJFOC-20100505731

PATIENT
  Sex: Female

DRUGS (1)
  1. REMICADE [Suspect]
     Indication: CROHN'S DISEASE
     Route: 042

REACTIONS (7)
  - HYPERTENSION [None]
  - INFECTION [None]
  - INFUSION SITE HAEMATOMA [None]
  - INFUSION SITE PAIN [None]
  - MIGRAINE [None]
  - RECTAL HAEMORRHAGE [None]
  - WHITE BLOOD CELL COUNT ABNORMAL [None]
